FAERS Safety Report 6181397-1 (Version None)
Quarter: 2009Q2

REPORT INFORMATION
  Report Type: 
  Country: None (occurrence: None)
  Receive Date: 20090501
  Receipt Date: 20090330
  Transmission Date: 20091009
  Serious: No
  Sender: FDA-Public Use
  Company Number: 2009002799

PATIENT
  Sex: Male

DRUGS (1)
  1. TREANDA [Suspect]
     Dosage: (90 MG/M2) , INTRAVENOUS
     Route: 042

REACTIONS (1)
  - NO THERAPEUTIC RESPONSE [None]
